FAERS Safety Report 4982441-7 (Version None)
Quarter: 2006Q2

REPORT INFORMATION
  Report Type: 
  Country: None (occurrence: None)
  Receive Date: 20060421
  Receipt Date: 20060410
  Transmission Date: 20061013
  Serious: Yes (Other)
  Sender: FDA-Public Use
  Company Number: 2006S1000075

PATIENT
  Age: 43 Year
  Sex: Male
  Weight: 102.7 kg

DRUGS (7)
  1. CUBICIN [Suspect]
     Indication: OSTEOMYELITIS
     Dosage: 415 MG; Q24H; IV
     Route: 042
     Dates: start: 20050609, end: 20050722
  2. VANCOMYCIN [Concomitant]
  3. CEFOTETAN [Concomitant]
  4. PIPERACILLIN SODIUM/TAZOBACTAM SODIUM [Concomitant]
  5. ERTAPENEM [Concomitant]
  6. LEVOFLOXACIN [Concomitant]
  7. PAIN MEDICATIONS [Concomitant]

REACTIONS (5)
  - CEREBRAL VENOUS THROMBOSIS [None]
  - DRUG TOXICITY [None]
  - ENTEROCOCCAL INFECTION [None]
  - OSTEOMYELITIS ACUTE [None]
  - VENOUS THROMBOSIS [None]
